FAERS Safety Report 6825946-6 (Version None)
Quarter: 2010Q3

REPORT INFORMATION
  Report Type: 
  Country: None (occurrence: None)
  Receive Date: 20100706
  Receipt Date: 20100226
  Transmission Date: 20110219
  Serious: Yes (Other)
  Sender: FDA-Public Use
  Company Number: 2010028166

PATIENT
  Age: 10 Year
  Sex: Female

DRUGS (1)
  1. ZOLOFT [Suspect]
     Indication: ANXIETY
     Dates: start: 20090101

REACTIONS (3)
  - ABNORMAL BEHAVIOUR [None]
  - ANXIETY [None]
  - SUICIDAL IDEATION [None]
